FAERS Safety Report 5084970-7 (Version None)
Quarter: 2006Q3

REPORT INFORMATION
  Report Type: 
  Country: None (occurrence: None)
  Receive Date: 20060821
  Receipt Date: 20060726
  Transmission Date: 20061208
  Serious: Yes (Hospitalization)
  Sender: FDA-Public Use
  Company Number: FR-ABBOTT-06P-056-0339054-00

PATIENT
  Age: 45 Year
  Sex: Female

DRUGS (19)
  1. DEPAKENE [Suspect]
     Indication: DRUG USE FOR UNKNOWN INDICATION
     Route: 042
     Dates: start: 20060619, end: 20060623
  2. NIMODIPINE [Suspect]
     Indication: DRUG USE FOR UNKNOWN INDICATION
     Route: 042
     Dates: start: 20060619, end: 20060624
  3. IOPAMIDOL-300 [Suspect]
     Indication: ANGIOGRAM
     Route: 042
     Dates: start: 20060619, end: 20060619
  4. VISIPAQUE [Suspect]
     Indication: THERAPEUTIC EMBOLISATION
     Route: 042
     Dates: start: 20060619, end: 20060619
  5. NEFOPAM HYDROCHLORIDE [Suspect]
     Indication: DRUG USE FOR UNKNOWN INDICATION
     Route: 042
     Dates: start: 20060619, end: 20060622
  6. ALMOTRIPTAN MALATE [Concomitant]
     Indication: MIGRAINE
     Route: 048
  7. MORPHINE [Concomitant]
     Indication: DRUG USE FOR UNKNOWN INDICATION
     Dates: start: 20060619, end: 20060620
  8. HEPARIN [Concomitant]
     Indication: DRUG USE FOR UNKNOWN INDICATION
     Dates: start: 20060619, end: 20060621
  9. HEPARIN-FRACTION, SODIUM SALT [Concomitant]
     Indication: DRUG USE FOR UNKNOWN INDICATION
     Dates: start: 20060621, end: 20060623
  10. DANAPAROID SODIUM [Concomitant]
     Indication: DRUG USE FOR UNKNOWN INDICATION
     Dates: start: 20060624, end: 20060703
  11. ACETAMINOPHEN [Concomitant]
     Indication: DRUG USE FOR UNKNOWN INDICATION
     Dates: start: 20060619, end: 20060623
  12. NEFOPAM HYDROCHLORIDE [Concomitant]
     Dates: start: 20060619, end: 20060622
  13. ONDANSETRON HCL [Concomitant]
     Indication: DRUG USE FOR UNKNOWN INDICATION
     Dates: start: 20060620, end: 20060622
  14. OMEPRAZOLE [Concomitant]
     Indication: DRUG USE FOR UNKNOWN INDICATION
     Dates: start: 20060619, end: 20060621
  15. OMEPRAZOLE [Concomitant]
     Dates: start: 20060627
  16. CERNEVIT-12 [Concomitant]
     Indication: DRUG USE FOR UNKNOWN INDICATION
     Dates: start: 20060619, end: 20060621
  17. PROPOFOL [Concomitant]
     Indication: DRUG USE FOR UNKNOWN INDICATION
     Dates: start: 20060619, end: 20060619
  18. MANNITOL [Concomitant]
     Indication: DRUG USE FOR UNKNOWN INDICATION
     Dates: start: 20060621
  19. CLORAZEPATE DIPOTASSIUM [Concomitant]
     Indication: DRUG USE FOR UNKNOWN INDICATION
     Dates: start: 20060621, end: 20060623

REACTIONS (2)
  - ANEURYSM RUPTURED [None]
  - RASH PUSTULAR [None]
